FAERS Safety Report 14705391 (Version 1)
Quarter: 2018Q2

REPORT INFORMATION
  Report Type: Spontaneous
  Country: US (occurrence: US)
  Receive Date: 20180402
  Receipt Date: 20180402
  Transmission Date: 20180711
  Serious: Yes (Death, Hospitalization)
  Sender: FDA-Public Use
  Company Number: US-BEH-2018089209

PATIENT
  Age: 62 Year
  Sex: Female
  Weight: 149.66 kg

DRUGS (30)
  1. ZEMAIRA [Suspect]
     Active Substance: .ALPHA.1-PROTEINASE INHIBITOR HUMAN
     Dosage: UNK
     Route: 042
  2. VENTOLIN [Concomitant]
     Active Substance: ALBUTEROL SULFATE
  3. NITROSTAT [Concomitant]
     Active Substance: NITROGLYCERIN
  4. NOVOLOG [Concomitant]
     Active Substance: INSULIN ASPART
  5. BROVANA [Concomitant]
     Active Substance: ARFORMOTEROL TARTRATE
  6. ALBUTEROL                          /00139501/ [Concomitant]
     Active Substance: ALBUTEROL
  7. FENOFIBRATE. [Concomitant]
     Active Substance: FENOFIBRATE
  8. PULMICORT TURBUHALER [Concomitant]
     Active Substance: BUDESONIDE
  9. PEPCID                             /00305201/ [Concomitant]
     Active Substance: ALUMINUM HYDROXIDE\MAGNESIUM CARBONATE
  10. ELIQUIS [Concomitant]
     Active Substance: APIXABAN
  11. SODIUM CHLORIDE. [Concomitant]
     Active Substance: SODIUM CHLORIDE
  12. DUONEB [Concomitant]
     Active Substance: ALBUTEROL SULFATE\IPRATROPIUM BROMIDE
  13. OXYGEN. [Concomitant]
     Active Substance: OXYGEN
  14. DIPHENHYDRAMINE. [Concomitant]
     Active Substance: DIPHENHYDRAMINE
  15. MULTIVITAMIN                       /00097801/ [Concomitant]
     Active Substance: VITAMINS
  16. TYLENOL [Concomitant]
     Active Substance: ACETAMINOPHEN
  17. LEVOTHROID [Concomitant]
     Active Substance: LEVOTHYROXINE SODIUM
  18. METOLAZONE. [Concomitant]
     Active Substance: METOLAZONE
  19. FUROSEMIDE. [Concomitant]
     Active Substance: FUROSEMIDE
  20. ATROVENT [Concomitant]
     Active Substance: IPRATROPIUM BROMIDE
  21. MIRALAX [Concomitant]
     Active Substance: POLYETHYLENE GLYCOL 3350
  22. POTASSIUM [Concomitant]
     Active Substance: POTASSIUM
  23. CARVEDILOL. [Concomitant]
     Active Substance: CARVEDILOL
  24. HEPARIN [Concomitant]
     Active Substance: HEPARIN SODIUM
  25. ASPIRIN. [Concomitant]
     Active Substance: ASPIRIN
  26. MUCINEX [Concomitant]
     Active Substance: GUAIFENESIN
  27. ZEMAIRA [Suspect]
     Active Substance: .ALPHA.1-PROTEINASE INHIBITOR HUMAN
     Indication: ALPHA-1 ANTI-TRYPSIN DEFICIENCY
     Dosage: 60 MG/KG, UNK
     Route: 042
     Dates: start: 20080519
  28. IPRATROPIUM BROMIDE AND ALBUTEROL SULFATE [Concomitant]
     Active Substance: ALBUTEROL SULFATE\IPRATROPIUM BROMIDE
  29. EPIPEN [Concomitant]
     Active Substance: EPINEPHRINE
  30. LIDOCAINE. [Concomitant]
     Active Substance: LIDOCAINE

REACTIONS (1)
  - Death [Fatal]

NARRATIVE: CASE EVENT DATE: 20180323
